FAERS Safety Report 12048157 (Version 2)
Quarter: 2016Q2

REPORT INFORMATION
  Report Type: Report from Study
  Country: US (occurrence: US)
  Receive Date: 20160209
  Receipt Date: 20160429
  Transmission Date: 20160815
  Serious: Yes (Other)
  Sender: FDA-Public Use
  Company Number: PHHY2016US012752

PATIENT
  Age: 55 Year
  Sex: Female

DRUGS (1)
  1. GILENYA [Suspect]
     Active Substance: FINGOLIMOD HYDROCHLORIDE
     Indication: MULTIPLE SCLEROSIS
     Route: 048

REACTIONS (8)
  - Constipation [Unknown]
  - Vision blurred [Unknown]
  - Dizziness [Unknown]
  - Dyspnoea [Recovered/Resolved]
  - Liver function test abnormal [Recovered/Resolved]
  - Lymphocyte count decreased [Unknown]
  - Insomnia [Unknown]
  - Confusional state [Unknown]

NARRATIVE: CASE EVENT DATE: 20140217
